FAERS Safety Report 6840034-0 (Version None)
Quarter: 2010Q3

REPORT INFORMATION
  Report Type: 
  Country: None (occurrence: None)
  Receive Date: 20100709
  Receipt Date: 20100625
  Transmission Date: 20110219
  Serious: Yes (Hospitalization, Other)
  Sender: FDA-Public Use
  Company Number: RB-11575-2010

PATIENT
  Age: 23 Year
  Sex: Male

DRUGS (11)
  1. SUBOXONE [Suspect]
     Indication: DRUG DEPENDENCE
     Dosage: SEE IMAGE
     Dates: start: 20091201, end: 20100101
  2. SUBOXONE [Suspect]
     Indication: DRUG DEPENDENCE
     Dosage: SEE IMAGE
     Dates: start: 20100101, end: 20100301
  3. SUBOXONE [Suspect]
     Indication: DRUG DEPENDENCE
     Dosage: SEE IMAGE
     Dates: start: 20100301, end: 20100401
  4. SUBOXONE [Suspect]
     Indication: DRUG DEPENDENCE
     Dosage: SEE IMAGE
     Dates: start: 20100401, end: 20100604
  5. SUBOXONE [Suspect]
     Indication: DRUG DEPENDENCE
     Dosage: SEE IMAGE
     Dates: start: 20100625
  6. CELEXA [Suspect]
     Indication: DEPRESSION
     Dosage: DOSING DETAILS UNKNOWN
     Dates: end: 20100601
  7. BUSPAR [Concomitant]
  8. PROZAC [Concomitant]
  9. XANAX [Concomitant]
  10. ATIVAN [Concomitant]
  11. SEROQUEL [Concomitant]

REACTIONS (7)
  - CONCUSSION [None]
  - DEPRESSION [None]
  - OVERDOSE [None]
  - ROAD TRAFFIC ACCIDENT [None]
  - SOMNAMBULISM [None]
  - SUICIDE ATTEMPT [None]
  - VICTIM OF CRIME [None]
